FAERS Safety Report 4879616-4 (Version None)
Quarter: 2006Q1

REPORT INFORMATION
  Report Type: 
  Country: None (occurrence: None)
  Receive Date: 20060113
  Receipt Date: 20050708
  Transmission Date: 20060701
  Serious: No
  Sender: FDA-Public Use
  Company Number: US-BRISTOL-MYERS SQUIBB COMPANY-13031018

PATIENT
  Age: 6 Decade
  Sex: Male

DRUGS (1)
  1. IFEX [Suspect]
     Indication: LEIOMYOSARCOMA

REACTIONS (1)
  - NIGHTMARE [None]
